FAERS Safety Report 13114238 (Version 9)
Quarter: 2021Q2

REPORT INFORMATION
  Report Type: Spontaneous
  Country: US (occurrence: US)
  Receive Date: 20170113
  Receipt Date: 20210402
  Transmission Date: 20210716
  Serious: No
  Sender: FDA-Public Use
  Company Number: US-PFIZER INC-2017013771

PATIENT
  Age: 68 Year
  Sex: Female

DRUGS (3)
  1. PRISTIQ EXTENDED?RELEASE [Suspect]
     Active Substance: DESVENLAFAXINE SUCCINATE
     Indication: DEPRESSION
     Dosage: 100 MG, 1X/DAY
  2. CELEBREX [Concomitant]
     Active Substance: CELECOXIB
     Dosage: UNK
  3. TOVIAZ [Suspect]
     Active Substance: FESOTERODINE FUMARATE
     Indication: URINARY INCONTINENCE
     Dosage: 4 MG, 1X/DAY

REACTIONS (8)
  - Frustration tolerance decreased [Unknown]
  - Speech disorder [Unknown]
  - Bladder disorder [Not Recovered/Not Resolved]
  - Memory impairment [Unknown]
  - Illness [Not Recovered/Not Resolved]
  - Fibromyalgia [Unknown]
  - Inappropriate schedule of product administration [Unknown]
  - Feeling abnormal [Unknown]

NARRATIVE: CASE EVENT DATE: 201607
